FAERS Safety Report 25778075 (Version 1)
Quarter: 2025Q3

REPORT INFORMATION
  Report Type: Spontaneous
  Country: US (occurrence: US)
  Receive Date: 20250909
  Receipt Date: 20250909
  Transmission Date: 20251020
  Serious: Yes (Other)
  Sender: RANBAXY
  Company Number: US-SUN PHARMACEUTICAL INDUSTRIES LTD-2025R1-526265

PATIENT
  Sex: Female

DRUGS (4)
  1. GABAPENTIN [Suspect]
     Active Substance: GABAPENTIN
     Indication: Erythromelalgia
     Route: 065
  2. DIPHENHYDRAMINE [Suspect]
     Active Substance: DIPHENHYDRAMINE
     Indication: Erythromelalgia
     Dosage: 100MG NIGHTLY
     Route: 065
  3. CETIRIZINE [Suspect]
     Active Substance: CETIRIZINE HYDROCHLORIDE
     Indication: Erythromelalgia
     Route: 065
  4. OXYMETAZOLINE [Suspect]
     Active Substance: OXYMETAZOLINE
     Indication: Erythromelalgia
     Route: 061

REACTIONS (1)
  - Therapy partial responder [Unknown]
